FAERS Safety Report 24959028 (Version 2)
Quarter: 2025Q1

REPORT INFORMATION
  Report Type: Spontaneous
  Country: US (occurrence: US)
  Receive Date: 20250212
  Receipt Date: 20250226
  Transmission Date: 20250408
  Serious: No
  Sender: DR REDDYS
  Company Number: US-DRL-USA-USA/2025/02/001941

PATIENT
  Age: 58 Year
  Sex: Male

DRUGS (1)
  1. CLOZAPINE [Suspect]
     Active Substance: CLOZAPINE
     Indication: Product used for unknown indication
     Route: 048

REACTIONS (2)
  - Respiratory tract infection [Unknown]
  - Bronchitis [Unknown]
